FAERS Safety Report 4368936-8 (Version None)
Quarter: 2004Q2

REPORT INFORMATION
  Report Type: 
  Country: None (occurrence: None)
  Receive Date: 20040528
  Receipt Date: 20040525
  Transmission Date: 20050107
  Serious: Yes (Hospitalization)
  Sender: FDA-Public Use
  Company Number: A400403002

PATIENT
  Age: 40 Year
  Sex: Female
  Weight: 68.0396 kg

DRUGS (7)
  1. FENTANYL [Suspect]
     Indication: NERVE COMPRESSION
     Dosage: EPIDURAL
     Route: 008
     Dates: start: 20040414
  2. MARCAINE [Suspect]
     Indication: NERVE COMPRESSION
     Dosage: 2CC, EPIDURAL
     Route: 008
     Dates: start: 20040414
  3. DEPO-MEDROL [Suspect]
     Indication: NERVE COMPRESSION
     Dosage: 80MG, EPIDURAL
     Route: 008
     Dates: start: 20050414
  4. DEMERAL [Concomitant]
  5. PHENERGAN [Concomitant]
  6. BENADRYL [Concomitant]
  7. ROCEPHIN [Concomitant]

REACTIONS (15)
  - ASTHENIA [None]
  - BURNING SENSATION [None]
  - CEREBROSPINAL FLUID LEAKAGE [None]
  - DISORIENTATION [None]
  - EYE DISORDER [None]
  - FEELING ABNORMAL [None]
  - FLAT AFFECT [None]
  - HEADACHE [None]
  - HYPOTENSION [None]
  - NAUSEA [None]
  - PAIN [None]
  - PYREXIA [None]
  - RASH ERYTHEMATOUS [None]
  - RESPIRATORY RATE INCREASED [None]
  - SENSORY LOSS [None]
